FAERS Safety Report 7313879-0 (Version None)
Quarter: 2011Q1

REPORT INFORMATION
  Report Type: 
  Country: None (occurrence: None)
  Receive Date: 20110217
  Receipt Date: 20110217
  Transmission Date: 20110831
  Serious: Yes (Disabling, Other)
  Sender: FDA-Public Use
  Company Number: None

PATIENT
  Sex: Female
  Weight: 72.7 kg

DRUGS (2)
  1. BONIVA [Suspect]
     Indication: OSTEOPENIA
     Dosage: 150 MG 1X MO ORAL
     Route: 048
     Dates: start: 20080301
  2. FOSAMAX [Suspect]
     Indication: OSTEOPENIA
     Dosage: 1 PILL 70MG 1X WK ORAL
     Route: 048
     Dates: start: 20071101, end: 20080301

REACTIONS (7)
  - GASTROOESOPHAGEAL REFLUX DISEASE [None]
  - MUSCULOSKELETAL PAIN [None]
  - CARDIAC FLUTTER [None]
  - PAIN [None]
  - OSTEOPENIA [None]
  - MUSCULOSKELETAL STIFFNESS [None]
  - PAIN IN EXTREMITY [None]
